FAERS Safety Report 6771491-6 (Version None)
Quarter: 2010Q2

REPORT INFORMATION
  Report Type: 
  Country: None (occurrence: None)
  Receive Date: 20100616
  Receipt Date: 20100611
  Transmission Date: 20101027
  Serious: Yes (Death)
  Sender: FDA-Public Use
  Company Number: JP-ROCHE-670105

PATIENT
  Sex: Male

DRUGS (5)
  1. TOCILIZUMAB [Suspect]
     Indication: RHEUMATOID ARTHRITIS
     Route: 041
     Dates: start: 20090407, end: 20090407
  2. TOCILIZUMAB [Suspect]
     Route: 041
     Dates: start: 20090610, end: 20090610
  3. TOCILIZUMAB [Suspect]
     Route: 041
     Dates: start: 20090819, end: 20090819
  4. RHEUMATREX [Concomitant]
     Route: 048
     Dates: end: 20091002
  5. ISCOTIN [Concomitant]
     Dosage: DOSE FORM: PERORAL AGENT.
     Route: 048
     Dates: end: 20091002

REACTIONS (1)
  - CARDIAC FAILURE ACUTE [None]
